FAERS Safety Report 6966264-5 (Version None)
Quarter: 2010Q3

REPORT INFORMATION
  Report Type: 
  Country: None (occurrence: None)
  Receive Date: 20100903
  Receipt Date: 20100823
  Transmission Date: 20110219
  Serious: Yes (Hospitalization)
  Sender: FDA-Public Use
  Company Number: US-ELI_LILLY_AND_COMPANY-US201005000088

PATIENT
  Sex: Female
  Weight: 64.853 kg

DRUGS (3)
  1. FORTEO [Suspect]
     Indication: OSTEOPOROSIS
     Dosage: 20 UG, DAILY (1/D)
     Dates: start: 20090309
  2. SYNTHROID [Concomitant]
     Dosage: 50 UG, DAILY (1/D)
  3. CRESTOR [Concomitant]
     Dosage: 10 MG, DAILY (1/D)

REACTIONS (3)
  - ACUTE CORONARY SYNDROME [None]
  - GASTROOESOPHAGEAL REFLUX DISEASE [None]
  - MYOCARDIAL INFARCTION [None]
